FAERS Safety Report 7444773-2 (Version None)
Quarter: 2011Q2

REPORT INFORMATION
  Report Type: 
  Country: None (occurrence: None)
  Receive Date: 20110426
  Receipt Date: 20110426
  Transmission Date: 20111010
  Serious: Yes (Death)
  Sender: FDA-Public Use
  Company Number: None

PATIENT
  Age: 67 Year
  Sex: Female

DRUGS (6)
  1. LEVOTHROID [Concomitant]
  2. REVLIMID [Suspect]
     Indication: MULTIPLE MYELOMA
     Dosage: 10MG DAILY X21D/28D ORALLY
     Route: 048
     Dates: start: 20080507, end: 20100118
  3. REVLIMID [Suspect]
     Indication: AMYLOIDOSIS
     Dosage: 10MG DAILY X21D/28D ORALLY
     Route: 048
     Dates: start: 20080507, end: 20100118
  4. REVLIMID [Suspect]
     Indication: MULTIPLE MYELOMA
     Dosage: 10MG DAILY X21D/28D ORALLY
     Route: 048
     Dates: start: 20060601, end: 20080101
  5. REVLIMID [Suspect]
     Indication: AMYLOIDOSIS
     Dosage: 10MG DAILY X21D/28D ORALLY
     Route: 048
     Dates: start: 20060601, end: 20080101
  6. CITALOPRAM HYDROBROMIDE [Concomitant]

REACTIONS (6)
  - RENAL IMPAIRMENT [None]
  - FULL BLOOD COUNT ABNORMAL [None]
  - MULTIPLE MYELOMA [None]
  - NEOPLASM PROGRESSION [None]
  - PROTEIN URINE PRESENT [None]
  - NEUROPATHY PERIPHERAL [None]
